FAERS Safety Report 7646928-0 (Version None)
Quarter: 2011Q3

REPORT INFORMATION
  Report Type: 
  Country: None (occurrence: None)
  Receive Date: 20110729
  Receipt Date: 20110729
  Transmission Date: 20111222
  Serious: Yes (Disabling)
  Sender: FDA-Public Use
  Company Number: None

PATIENT
  Age: 58 Year
  Sex: Female
  Weight: 77.1115 kg

DRUGS (2)
  1. METRONIDAZOLE [Suspect]
     Indication: CLOSTRIDIAL INFECTION
     Dosage: 500MG AND 250 MG EVERY 8 HRS MOUTH
     Route: 048
     Dates: start: 20101024, end: 20101201
  2. METRONIDAZOLE [Suspect]
     Indication: VAGINAL INFECTION
     Dosage: 70 (?) ONCE DAILY VAGINAL
     Route: 067
     Dates: start: 20110505, end: 20110512

REACTIONS (2)
  - PAIN IN EXTREMITY [None]
  - HYPOAESTHESIA [None]
